FAERS Safety Report 5557865-X (Version None)
Quarter: 2007Q4

REPORT INFORMATION
  Report Type: 
  Country: None (occurrence: None)
  Receive Date: 20071214
  Receipt Date: 20071203
  Transmission Date: 20080405
  Serious: Yes (Hospitalization)
  Sender: FDA-Public Use
  Company Number: BE-ELI_LILLY_AND_COMPANY-BE200710006923

PATIENT
  Sex: Female
  Weight: 38 kg

DRUGS (6)
  1. FORTEO [Suspect]
     Indication: OSTEOPOROSIS
     Dosage: 20 UG, DAILY (1/D)
     Route: 058
     Dates: start: 20070617
  2. MS CONTIN [Concomitant]
     Indication: MUSCULOSKELETAL PAIN
     Dosage: 30 MG, 2/D
     Route: 065
     Dates: start: 20070701
  3. ACETAMINOPHEN [Concomitant]
     Indication: MUSCULOSKELETAL PAIN
     Dosage: 1000 MG, 2 TO 3 PER DAY
     Route: 065
     Dates: start: 20070701
  4. LITICAN [Concomitant]
     Indication: ABDOMINAL PAIN UPPER
     Dosage: UNK, DAILY (1/D)
     Route: 065
     Dates: start: 20070701
  5. REDOMEX [Concomitant]
     Indication: MUSCULOSKELETAL PAIN
     Dosage: 25 MG, 2/D
     Route: 065
     Dates: start: 20070701
  6. MYOLASTAN [Concomitant]
     Indication: MUSCULOSKELETAL PAIN
     Dosage: UNK, DAILY (1/D)
     Route: 065
     Dates: start: 20070701

REACTIONS (1)
  - SPINAL FRACTURE [None]
